FAERS Safety Report 19179561 (Version 1)
Quarter: 2021Q2

REPORT INFORMATION
  Report Type: Spontaneous
  Country: US (occurrence: US)
  Receive Date: 20210426
  Receipt Date: 20210426
  Transmission Date: 20210717
  Serious: Yes (Other)
  Sender: FDA-Public Use
  Company Number: US-GLAXOSMITHKLINE-US2021087579

PATIENT
  Sex: Male

DRUGS (1)
  1. SORIATANE [Suspect]
     Active Substance: ACITRETIN
     Indication: DRY SKIN
     Dosage: 25 MG, Z (ONCE EVERY 3 DAYS)
     Dates: start: 202102

REACTIONS (2)
  - Prostate cancer [Unknown]
  - Chemotherapy [Unknown]
